FAERS Safety Report 9594976 (Version 1)
Quarter: 2013Q4

REPORT INFORMATION
  Report Type: Spontaneous
  Country: US (occurrence: US)
  Receive Date: 20131004
  Receipt Date: 20131004
  Transmission Date: 20140711
  Serious: No
  Sender: FDA-Public Use
  Company Number: US-PURDUE-USA-2012-0093794

PATIENT
  Sex: Male

DRUGS (2)
  1. BUTRANS [Suspect]
     Indication: PAIN
     Route: 062
  2. VICODIN [Concomitant]
     Indication: PAIN

REACTIONS (2)
  - Drug dose omission [Unknown]
  - Insomnia [Unknown]
